FAERS Safety Report 13391308 (Version 1)
Quarter: 2017Q1

REPORT INFORMATION
  Report Type: Spontaneous
  Country: US (occurrence: US)
  Receive Date: 20170331
  Receipt Date: 20170331
  Transmission Date: 20170429
  Serious: Yes (Hospitalization, Other)
  Sender: FDA-Public Use
  Company Number: US-TEVA-754326USA

PATIENT
  Sex: Female
  Weight: 104.42 kg

DRUGS (8)
  1. PRAVASTATIN. [Concomitant]
     Active Substance: PRAVASTATIN
     Route: 065
  2. TRAZODONE [Concomitant]
     Active Substance: TRAZODONE HYDROCHLORIDE
     Route: 065
  3. POTASSIUM [Concomitant]
     Active Substance: POTASSIUM
     Route: 065
  4. COPAXONE [Suspect]
     Active Substance: GLATIRAMER ACETATE
     Indication: MULTIPLE SCLEROSIS
     Route: 065
     Dates: start: 2001
  5. MOTRIN [Concomitant]
     Active Substance: IBUPROFEN
     Route: 065
  6. CYMBALTA [Concomitant]
     Active Substance: DULOXETINE HYDROCHLORIDE
     Route: 065
  7. NO DRUG NAME [Concomitant]
  8. MECLIZINE [Concomitant]
     Active Substance: MECLIZINE HYDROCHLORIDE
     Route: 065

REACTIONS (9)
  - Mass [Unknown]
  - Pruritus [Unknown]
  - Hospitalisation [Unknown]
  - Motor dysfunction [Unknown]
  - Peripheral swelling [Unknown]
  - Multiple sclerosis [Unknown]
  - Activities of daily living impaired [Unknown]
  - Dysstasia [Unknown]
  - Erythema [Unknown]

NARRATIVE: CASE EVENT DATE: 2001
